FAERS Safety Report 6032468-1 (Version None)
Quarter: 2009Q1

REPORT INFORMATION
  Report Type: 
  Country: None (occurrence: None)
  Receive Date: 20090109
  Receipt Date: 20081229
  Transmission Date: 20090719
  Serious: Yes (Death, Congenital Anomaly, Other)
  Sender: FDA-Public Use
  Company Number: US-PFIZER INC-2008049876

PATIENT
  Sex: Female

DRUGS (3)
  1. ZOLOFT [Suspect]
     Indication: DEPRESSION
     Route: 064
  2. ZOLOFT [Suspect]
     Indication: ANXIETY
  3. LEXAPRO [Concomitant]

REACTIONS (11)
  - AORTIC VALVE STENOSIS [None]
  - ATRIOVENTRICULAR SEPTAL DEFECT [None]
  - DRUG EXPOSURE DURING PREGNANCY [None]
  - HEPATIC CONGESTION [None]
  - LUNG DISORDER [None]
  - MITRAL VALVE HYPOPLASIA [None]
  - MULTIPLE CONGENITAL ABNORMALITIES [None]
  - PATENT DUCTUS ARTERIOSUS [None]
  - PERSISTENT FOETAL CIRCULATION [None]
  - RENAL TUBULAR NECROSIS [None]
  - RIGHT VENTRICULAR HYPERTROPHY [None]
